FAERS Safety Report 11574310 (Version 1)
Quarter: 2015Q3

REPORT INFORMATION
  Report Type: Spontaneous
  Country: US (occurrence: None)
  Receive Date: 20150928
  Receipt Date: 20150928
  Transmission Date: 20151125
  Serious: No
  Sender: FDA-Public Use
  Company Number: None

PATIENT
  Age: 66 Year
  Sex: Female

DRUGS (1)
  1. IBUPROFEN 800MG DR. REDDY^S [Suspect]
     Active Substance: IBUPROFEN
     Indication: BACK PAIN
     Dosage: Q 6-8 H
     Route: 048
     Dates: start: 20150925

REACTIONS (2)
  - Aphonia [None]
  - Dysphonia [None]

NARRATIVE: CASE EVENT DATE: 20150925
